FAERS Safety Report 16908118 (Version 1)
Quarter: 2019Q4

REPORT INFORMATION
  Report Type: Spontaneous
  Country: US (occurrence: US)
  Receive Date: 20191011
  Receipt Date: 20191011
  Transmission Date: 20200122
  Serious: No
  Sender: FDA-Public Use
  Company Number: US-GLAXOSMITHKLINE-US2019180749

PATIENT
  Age: 46 Year
  Sex: Female

DRUGS (2)
  1. ALLI [Suspect]
     Active Substance: ORLISTAT
     Indication: WEIGHT CONTROL
     Dosage: TOOK 3 YESTERDAY, UNK
     Dates: start: 20191001, end: 20191002
  2. HYDROXYCUT [Concomitant]
     Active Substance: DIETARY SUPPLEMENT
     Indication: PRODUCT USED FOR UNKNOWN INDICATION
     Dosage: UNK

REACTIONS (11)
  - Abdominal pain upper [Not Recovered/Not Resolved]
  - Headache [Unknown]
  - Product storage error [Unknown]
  - Vomiting [Unknown]
  - Nausea [Unknown]
  - Insomnia [Not Recovered/Not Resolved]
  - Anxiety [Unknown]
  - Malaise [Unknown]
  - Abnormal loss of weight [Unknown]
  - Depression [Unknown]
  - Abdominal discomfort [Unknown]

NARRATIVE: CASE EVENT DATE: 20191002
